FAERS Safety Report 5750604-9 (Version None)
Quarter: 2008Q2

REPORT INFORMATION
  Report Type: 
  Country: None (occurrence: None)
  Receive Date: 20080523
  Receipt Date: 20080523
  Transmission Date: 20081010
  Serious: Yes (Other)
  Sender: FDA-Public Use
  Company Number: None

PATIENT
  Sex: Female
  Weight: 81.6475 kg

DRUGS (2)
  1. LORATADINE [Suspect]
     Indication: MULTIPLE ALLERGIES
     Dosage: 1 10MG DAILY ORAL
     Route: 048
     Dates: start: 20080507, end: 20080512
  2. LORATADINE [Suspect]
     Indication: SEASONAL ALLERGY
     Dosage: 1 10MG DAILY ORAL
     Route: 048
     Dates: start: 20080507, end: 20080512

REACTIONS (3)
  - DRUG INEFFECTIVE [None]
  - PHARMACEUTICAL PRODUCT COMPLAINT [None]
  - POOR QUALITY DRUG ADMINISTERED [None]
